FAERS Safety Report 7491214-5 (Version None)
Quarter: 2011Q2

REPORT INFORMATION
  Report Type: 
  Country: None (occurrence: None)
  Receive Date: 20110519
  Receipt Date: 20110513
  Transmission Date: 20111010
  Serious: Yes (Other)
  Sender: FDA-Public Use
  Company Number: FR-PFIZER INC-2011103947

PATIENT
  Age: 63 Year
  Sex: Female

DRUGS (2)
  1. XANAX [Suspect]
     Dosage: TIME TO TIME (1/2 TABLET 2 TIMES PER WEEK FOR EXAMPLE)
  2. AMLODIPINE BESYLATE [Concomitant]
     Dosage: UNK

REACTIONS (8)
  - SKIN PLAQUE [None]
  - DEPRESSED MOOD [None]
  - DEFORMITY [None]
  - INSOMNIA [None]
  - SCRATCH [None]
  - ACNE [None]
  - ANXIETY [None]
  - PRURITUS [None]
